FAERS Safety Report 6579318-2 (Version None)
Quarter: 2010Q1

REPORT INFORMATION
  Report Type: 
  Country: None (occurrence: None)
  Receive Date: 20100212
  Receipt Date: 20100205
  Transmission Date: 20100710
  Serious: Yes (Death, Life-Threatening)
  Sender: FDA-Public Use
  Company Number: JP-BAYER-200914364BYL

PATIENT
  Age: 76 Year
  Sex: Male
  Weight: 65 kg

DRUGS (5)
  1. NEXAVAR [Suspect]
     Indication: HEPATIC NEOPLASM MALIGNANT
     Route: 048
     Dates: start: 20090821
  2. NEXAVAR [Suspect]
     Dosage: TOTAL DAILY DOSE: 400 MG  UNIT DOSE: 200 MG
     Route: 048
     Dates: end: 20090901
  3. URSO 250 [Concomitant]
     Indication: HEPATITIS C
     Dosage: UNIT DOSE: 100 MG
     Route: 048
     Dates: start: 20020301, end: 20090917
  4. LIVACT [Concomitant]
     Indication: HEPATIC CIRRHOSIS
     Dosage: UNIT DOSE: 4.15 G
     Route: 048
     Dates: start: 20021210, end: 20090917
  5. RINDERON [Concomitant]
     Indication: ASTHMA
     Dosage: UNIT DOSE: 0.5 MG
     Route: 048
     Dates: start: 20020904, end: 20090917

REACTIONS (4)
  - DIARRHOEA [None]
  - HEPATIC FAILURE [None]
  - LIVER DISORDER [None]
  - PALMAR-PLANTAR ERYTHRODYSAESTHESIA SYNDROME [None]
